FAERS Safety Report 13865587 (Version 1)
Quarter: 2017Q3

REPORT INFORMATION
  Report Type: Report from Study
  Country: US (occurrence: US)
  Receive Date: 20170814
  Receipt Date: 20170814
  Transmission Date: 20171127
  Serious: No
  Sender: FDA-Public Use
  Company Number: US-AEGERION PHARMACEUTICAL, INC-AEGR000561

PATIENT
  Sex: Female
  Weight: 78.5 kg

DRUGS (3)
  1. JUXTAPID [Interacting]
     Active Substance: LOMITAPIDE MESYLATE
     Dosage: 20 MG, QD
     Route: 048
     Dates: start: 201311
  2. LOVAZA [Interacting]
     Active Substance: OMEGA-3-ACID ETHYL ESTERS
     Indication: PRODUCT USED FOR UNKNOWN INDICATION
  3. JUXTAPID [Suspect]
     Active Substance: LOMITAPIDE MESYLATE
     Indication: TYPE IIA HYPERLIPIDAEMIA
     Dosage: 5 MG, QD
     Route: 048
     Dates: start: 201307, end: 201311

REACTIONS (7)
  - Influenza like illness [Recovered/Resolved]
  - Influenza [Recovered/Resolved]
  - Dermatitis contact [Not Recovered/Not Resolved]
  - Drug interaction [Unknown]
  - Pruritus generalised [Not Recovered/Not Resolved]
  - Diarrhoea [Not Recovered/Not Resolved]
  - Therapy cessation [Recovered/Resolved]

NARRATIVE: CASE EVENT DATE: 2014
